FAERS Safety Report 13597086 (Version 1)
Quarter: 2017Q2

REPORT INFORMATION
  Report Type: Spontaneous
  Country: US (occurrence: US)
  Receive Date: 20170531
  Receipt Date: 20170531
  Transmission Date: 20170830
  Serious: Yes (Death, Life-Threatening, Disabling, Other)
  Sender: FDA-Public Use
  Company Number: None

PATIENT
  Age: 25 Year
  Sex: Male
  Weight: 63.7 kg

DRUGS (1)
  1. PROPECIA [Suspect]
     Active Substance: FINASTERIDE
     Indication: ANDROGENETIC ALOPECIA
     Route: 048
     Dates: start: 201009, end: 201304

REACTIONS (18)
  - Gynaecomastia [None]
  - Amnesia [None]
  - Social avoidant behaviour [None]
  - Erectile dysfunction [None]
  - Feeling abnormal [None]
  - Tinnitus [None]
  - Insomnia [None]
  - Vision blurred [None]
  - Completed suicide [None]
  - Fatigue [None]
  - Emotional disorder [None]
  - Disturbance in attention [None]
  - Gastrointestinal bacterial overgrowth [None]
  - Adjustment disorder [None]
  - Loss of libido [None]
  - Depression [None]
  - Multiple allergies [None]
  - Myalgia [None]

NARRATIVE: CASE EVENT DATE: 20160607
